FAERS Safety Report 22005737 (Version 2)
Quarter: 2023Q1

REPORT INFORMATION
  Report Type: Spontaneous
  Country: US (occurrence: US)
  Receive Date: 20230217
  Receipt Date: 20230316
  Transmission Date: 20230417
  Serious: Yes (Other)
  Sender: FDA-Public Use
  Company Number: US-PFIZER INC-PV202300029379

PATIENT
  Age: 55 Year
  Sex: Female

DRUGS (2)
  1. XELJANZ XR [Suspect]
     Active Substance: TOFACITINIB CITRATE
     Indication: Rheumatoid arthritis
     Dosage: 11 MG, 1X/DAY
     Route: 048
     Dates: start: 2022
  2. XELJANZ XR [Suspect]
     Active Substance: TOFACITINIB CITRATE
     Dosage: 11 MG (6 DAYS PER WEEK)
     Route: 048
     Dates: start: 2022

REACTIONS (9)
  - Arthralgia [Recovering/Resolving]
  - Osteoporosis [Unknown]
  - Cystitis [Recovered/Resolved]
  - Blood cholesterol increased [Unknown]
  - Albumin globulin ratio increased [Unknown]
  - Exostosis [Unknown]
  - Tendonitis [Unknown]
  - Arthritis [Unknown]
  - Off label use [Unknown]
